FAERS Safety Report 22532274 (Version 1)
Quarter: 2023Q2

REPORT INFORMATION
  Report Type: Spontaneous
  Country: DE (occurrence: DE)
  Receive Date: 20230607
  Receipt Date: 20230607
  Transmission Date: 20230722
  Serious: Yes (Hospitalization)
  Sender: FDA-Public Use
  Company Number: DE-002147023-NVSC2023DE084112

PATIENT
  Sex: Male
  Weight: 150 kg

DRUGS (30)
  1. VALSARTAN [Suspect]
     Active Substance: VALSARTAN
     Indication: Hypertension
     Dosage: 80 MG, (DAILY IN THE MORNING / ONE DOSE IN THE MORNING, HALF OF A DOSE IN THE EVENING)
     Route: 065
     Dates: start: 201411, end: 2015
  2. VALSARTAN [Suspect]
     Active Substance: VALSARTAN
     Dosage: 320/25 MG, QD, ONCE DAILY IN THE MORNING
     Route: 048
     Dates: start: 20150831, end: 201605
  3. VALSARTAN [Suspect]
     Active Substance: VALSARTAN
     Dosage: 320MG / 25MG, QD, ONCE DAILY IN THE MORNING
     Route: 065
     Dates: start: 201607, end: 201704
  4. VALSARTAN [Suspect]
     Active Substance: VALSARTAN
     Dosage: 320MG / 25MG, QD, ONCE DAILY IN THE MORNING
     Route: 065
     Dates: start: 201707, end: 201710
  5. VALSARTAN [Suspect]
     Active Substance: VALSARTAN
     Dosage: 320MG / 25MG, QD, ONCE DAILY IN THE MORNING
     Route: 065
     Dates: start: 201801, end: 201804
  6. VALSARTAN [Suspect]
     Active Substance: VALSARTAN
     Indication: Hypertension
     Dosage: 320MG / 25MG, QD, DAILY IN THE MORNING
     Route: 065
     Dates: start: 201710, end: 201801
  7. VALSARTAN [Suspect]
     Active Substance: VALSARTAN
     Dosage: 320MG / 25MG, QD, DAILY IN THE MORNING
     Route: 065
     Dates: start: 201804, end: 201807
  8. VALSARTAN [Suspect]
     Active Substance: VALSARTAN
     Indication: Hypertension
     Dosage: 320 MG, QD, ONCE DAILY (IN THE MORNING)
     Route: 065
  9. VALSARTAN [Suspect]
     Active Substance: VALSARTAN
     Dosage: UNK, QD, ONCE IN THE MORNING, ONCE IN THE EVENING (1-0-1)
     Route: 065
  10. AMIODARONE [Suspect]
     Active Substance: AMIODARONE
     Indication: Atrial fibrillation
     Dosage: 200 MG, TID
     Route: 048
     Dates: start: 20210115
  11. ENTRESTO [Suspect]
     Active Substance: SACUBITRIL\VALSARTAN
     Indication: Dilated cardiomyopathy
     Dosage: UNK
     Route: 065
  12. ENTRESTO [Suspect]
     Active Substance: SACUBITRIL\VALSARTAN
     Indication: Myocarditis
  13. SPIRONOLACTONE [Suspect]
     Active Substance: SPIRONOLACTONE
     Indication: Cardiac failure
     Dosage: UNK
     Route: 065
  14. AMIODARONE [Concomitant]
     Active Substance: AMIODARONE
     Indication: Arrhythmia
     Dosage: UNK
     Route: 065
     Dates: start: 20210114
  15. AMIODARONE [Concomitant]
     Active Substance: AMIODARONE
     Dosage: 200 MG, TID
     Route: 048
     Dates: start: 20210114
  16. DIGITOXINE [Concomitant]
     Indication: Product used for unknown indication
     Dosage: 0.07 MG, QD, (1-0-0) (IN THE MORNING WAS TAKEN ABOUT 8 AM)
     Route: 065
     Dates: start: 20210114
  17. DIGITOXINE [Concomitant]
     Dosage: 0.07 MG, QD, (1-0-0) (IN THE MORNING WAS TAKEN ABOUT 8 AM)
     Route: 048
     Dates: start: 20210115
  18. DIGITOXINE [Concomitant]
     Dosage: 0.07 MG, QD, (1-0-0) (IN THE MORNING WAS TAKEN ABOUT 8 AM)
     Route: 048
     Dates: start: 20210116, end: 20210116
  19. DIGITOXINE [Concomitant]
     Dosage: 0.07 MG
     Route: 065
     Dates: start: 20210126
  20. BELOC [Concomitant]
     Indication: Product used for unknown indication
     Dosage: 2.5 MG, (A FREQUENCY CONTROL OF APPROX. 10/MIN WAS ACHIEVED)
     Route: 065
  21. PANTOPRAZOLE [Concomitant]
     Active Substance: PANTOPRAZOLE
     Indication: Product used for unknown indication
     Dosage: 40 MG, QD (1-0-0) (IN THE MORNING WAS TAKEN ABOUT 8 AM)
     Route: 048
     Dates: start: 20210114
  22. PANTOPRAZOLE [Concomitant]
     Active Substance: PANTOPRAZOLE
     Dosage: 40 MG, QD (1-0-0) (IN THE MORNING WAS TAKEN ABOUT 8 AM)
     Route: 048
     Dates: start: 20210115
  23. PANTOPRAZOLE [Concomitant]
     Active Substance: PANTOPRAZOLE
     Dosage: 40 MG, QD (1-0-0) (IN THE MORNING WAS TAKEN ABOUT 8 AM)
     Route: 048
     Dates: start: 20210116, end: 20210116
  24. PANTOPRAZOLE SODIUM [Concomitant]
     Active Substance: PANTOPRAZOLE SODIUM
     Indication: Product used for unknown indication
     Dosage: 20 MG
     Route: 065
     Dates: start: 20210126
  25. ZOPICLONE [Concomitant]
     Active Substance: ZOPICLONE
     Indication: Product used for unknown indication
     Dosage: 4 DOSAGE FORM
     Route: 065
  26. BISOPROLOL [Concomitant]
     Active Substance: BISOPROLOL
     Indication: Product used for unknown indication
     Dosage: 2.5 MG, QD, (0-0-1), IN THE EVENING ABOUT 8 PM
     Route: 065
     Dates: start: 20210114
  27. BISOPROLOL [Concomitant]
     Active Substance: BISOPROLOL
     Dosage: 2.5 MG, BID, (2-0-2)
     Route: 048
     Dates: start: 20210115
  28. BISOPROLOL [Concomitant]
     Active Substance: BISOPROLOL
     Dosage: 2.5 MG, BID, (2-0-2)
     Route: 048
     Dates: start: 20210116
  29. BISOPROLOL [Concomitant]
     Active Substance: BISOPROLOL
     Dosage: 2.5 MG
     Route: 065
     Dates: start: 20210126
  30. BISOPROLOL FUMARATE [Concomitant]
     Active Substance: BISOPROLOL FUMARATE
     Indication: Product used for unknown indication
     Dosage: 5 MG, BID,(ONCE IN THE MORNING, ONCE IN THE EVENING )
     Route: 048
     Dates: start: 20210116

REACTIONS (3)
  - Atrial fibrillation [Unknown]
  - Tachycardia [Unknown]
  - Dizziness [Unknown]

NARRATIVE: CASE EVENT DATE: 20210101
